FAERS Safety Report 12770056 (Version 4)
Quarter: 2016Q4

REPORT INFORMATION
  Report Type: Spontaneous
  Country: JP (occurrence: JP)
  Receive Date: 20160922
  Receipt Date: 20161206
  Transmission Date: 20170207
  Serious: Yes (Death, Other)
  Sender: FDA-Public Use
  Company Number: JP-ROCHE-1832441

PATIENT
  Age: 67 Year
  Sex: Male
  Weight: 58 kg

DRUGS (18)
  1. ELPLAT [Suspect]
     Active Substance: OXALIPLATIN
     Indication: COLON CANCER
     Route: 041
     Dates: start: 20160826, end: 20160826
  2. FAMOTIDINE. [Concomitant]
     Active Substance: FAMOTIDINE
     Indication: PROPHYLAXIS OF NAUSEA AND VOMITING
     Route: 041
     Dates: start: 20160826, end: 20160827
  3. PRIMPERAN [Concomitant]
     Active Substance: METOCLOPRAMIDE HYDROCHLORIDE
     Dosage: DOSAGE IS UNCERTAIN.
     Route: 065
  4. ALOXI [Concomitant]
     Active Substance: PALONOSETRON HYDROCHLORIDE
     Indication: PROPHYLAXIS OF NAUSEA AND VOMITING
     Route: 041
     Dates: start: 20160826, end: 20160826
  5. PITAVASTATIN CALCIUM [Concomitant]
     Active Substance: PITAVASTATIN CALCIUM
     Dosage: DOSAGE IS UNCERTAIN.
     Route: 048
  6. ATARAX-P [Concomitant]
     Active Substance: HYDROXYZINE HYDROCHLORIDE
     Dosage: DOSAGE IS UNCERTAIN.
     Route: 065
  7. SOSEGON [Concomitant]
     Active Substance: PENTAZOCINE
     Dosage: DOSAGE IS UNCERTAIN.
     Route: 065
  8. BLOPRESS [Concomitant]
     Active Substance: CANDESARTAN CILEXETIL
     Dosage: DOSAGE IS UNCERTAIN.
     Route: 048
  9. METHYCOBAL [Concomitant]
     Active Substance: METHYLCOBALAMIN
     Dosage: DOSAGE IS UNCERTAIN.
     Route: 048
  10. AVASTIN [Suspect]
     Active Substance: BEVACIZUMAB
     Indication: COLON CANCER
     Route: 041
     Dates: start: 20160826, end: 20160826
  11. LEVOFOLINATE [Suspect]
     Active Substance: LEVOLEUCOVORIN CALCIUM
     Indication: COLON CANCER
     Route: 041
     Dates: start: 20160826, end: 20160826
  12. DEXART [Concomitant]
     Active Substance: DEXAMETHASONE SODIUM PHOSPHATE
     Indication: PROPHYLAXIS OF NAUSEA AND VOMITING
     Route: 041
     Dates: start: 20160826, end: 20160827
  13. NORVASC [Concomitant]
     Active Substance: AMLODIPINE BESYLATE
     Dosage: DOSAGE IS UNCERTAIN.
     Route: 048
  14. ROHYPNOL [Concomitant]
     Active Substance: FLUNITRAZEPAM
     Dosage: DOSAGE IS UNCERTAIN.
     Route: 065
  15. URINORM (JAPAN) [Concomitant]
     Dosage: DOSAGE IS UNCERTAIN.
     Route: 048
  16. 5-FU [Suspect]
     Active Substance: FLUOROURACIL
     Indication: COLON CANCER
     Route: 040
     Dates: start: 20160826, end: 20160826
  17. 5-FU [Suspect]
     Active Substance: FLUOROURACIL
     Indication: COLON CANCER
     Dosage: FOR 46 HOURS?DOSE INTERVAL UNCERTAINTY
     Route: 041
     Dates: start: 20160826, end: 20160827
  18. POLARAMINE [Concomitant]
     Active Substance: DEXCHLORPHENIRAMINE MALEATE
     Indication: PROPHYLAXIS OF NAUSEA AND VOMITING
     Route: 041
     Dates: start: 20160826, end: 20160826

REACTIONS (10)
  - Pancytopenia [Fatal]
  - Cerebral haemorrhage [Fatal]
  - Multiple organ dysfunction syndrome [Fatal]
  - Nausea [Unknown]
  - Vomiting [Unknown]
  - Dehydration [Unknown]
  - Toxic encephalopathy [Fatal]
  - Hepatic failure [Fatal]
  - Altered state of consciousness [Fatal]
  - Disseminated intravascular coagulation [Unknown]

NARRATIVE: CASE EVENT DATE: 20160827
